FAERS Safety Report 9706872 (Version 1)
Quarter: 2013Q4

REPORT INFORMATION
  Report Type: Report from Study
  Country: CA (occurrence: CA)
  Receive Date: 20131125
  Receipt Date: 20131125
  Transmission Date: 20140711
  Serious: Yes (Other)
  Sender: FDA-Public Use
  Company Number: CA-JNJFOC-20131113234

PATIENT
  Sex: Male
  Weight: 83 kg

DRUGS (6)
  1. REMICADE [Suspect]
     Indication: CROHN^S DISEASE
     Route: 042
     Dates: start: 20071017
  2. MORPHINE [Concomitant]
     Indication: ARTHRALGIA
     Dosage: IN PM
     Route: 065
  3. MORPHINE [Concomitant]
     Indication: ARTHRALGIA
     Dosage: IN AM.
     Route: 065
  4. COVERSYL [Concomitant]
     Route: 065
  5. CIPROLEX [Concomitant]
     Route: 065
  6. ADVAIR [Concomitant]
     Dosage: PRN.
     Route: 065

REACTIONS (1)
  - Colon cancer [Unknown]
